FAERS Safety Report 25055491 (Version 1)
Quarter: 2025Q1

REPORT INFORMATION
  Report Type: Spontaneous
  Country: AT (occurrence: AT)
  Receive Date: 20250308
  Receipt Date: 20250308
  Transmission Date: 20250409
  Serious: Yes (Other)
  Sender: AMGEN
  Company Number: AT-AMGEN-AUTSP2025041938

PATIENT
  Age: 45 Year
  Sex: Female

DRUGS (4)
  1. NPLATE [Suspect]
     Active Substance: ROMIPLOSTIM
     Indication: Immune thrombocytopenia
     Dosage: 10 MICROGRAM/KILOGRAM, Q2WK
     Route: 065
     Dates: start: 20220110
  2. PREDNISOLONE [Concomitant]
     Active Substance: PREDNISOLONE
  3. ROMIPLOSTIM [Concomitant]
     Active Substance: ROMIPLOSTIM
  4. AVATROMBOPAG [Concomitant]
     Active Substance: AVATROMBOPAG

REACTIONS (4)
  - Cerebral venous sinus thrombosis [Unknown]
  - Therapeutic product effect decreased [Unknown]
  - Leukocytosis [Unknown]
  - Therapy interrupted [Unknown]
